FAERS Safety Report 20758769 (Version 2)
Quarter: 2022Q2

REPORT INFORMATION
  Report Type: Spontaneous
  Country: CZ (occurrence: CZ)
  Receive Date: 20220427
  Receipt Date: 20220509
  Transmission Date: 20220720
  Serious: Yes (Hospitalization, Other)
  Sender: FDA-Public Use
  Company Number: CZ-BoehringerIngelheim-2022-BI-167647

PATIENT
  Age: 87 Year
  Sex: Male

DRUGS (10)
  1. PRADAXA [Suspect]
     Active Substance: DABIGATRAN ETEXILATE MESYLATE
     Indication: Atrial fibrillation
     Route: 048
     Dates: start: 201911, end: 20220420
  2. LINAGLIPTIN [Concomitant]
     Active Substance: LINAGLIPTIN
     Indication: Product used for unknown indication
  3. BISOPROLOL FUMARATE [Concomitant]
     Active Substance: BISOPROLOL FUMARATE
     Indication: Product used for unknown indication
  4. FUROSEMIDE [Concomitant]
     Active Substance: FUROSEMIDE
     Indication: Product used for unknown indication
  5. SPIRONOLACTONE [Concomitant]
     Active Substance: SPIRONOLACTONE
     Indication: Product used for unknown indication
  6. DIOSMIN\HESPERIDIN [Concomitant]
     Active Substance: DIOSMIN\HESPERIDIN
     Indication: Product used for unknown indication
  7. Duodard [Concomitant]
     Indication: Product used for unknown indication
  8. Osteogenon [Concomitant]
     Indication: Product used for unknown indication
  9. MELOXICAM [Concomitant]
     Active Substance: MELOXICAM
     Indication: Product used for unknown indication
  10. EUPHILLYN [Concomitant]

REACTIONS (5)
  - Prostate cancer [Unknown]
  - Rectal cancer [Unknown]
  - Metastases to bone [Unknown]
  - Cerebrovascular accident [Recovered/Resolved with Sequelae]
  - Procoagulant therapy [Unknown]

NARRATIVE: CASE EVENT DATE: 20220401
